FAERS Safety Report 4552888-1 (Version None)
Quarter: 2005Q1

REPORT INFORMATION
  Report Type: 
  Country: None (occurrence: None)
  Receive Date: 20050113
  Receipt Date: 20050104
  Transmission Date: 20050727
  Serious: Yes (Other)
  Sender: FDA-Public Use
  Company Number: K200500012

PATIENT
  Age: 48 Year
  Sex: Female
  Weight: 47.2 kg

DRUGS (5)
  1. LEVOXYL [Suspect]
     Indication: HYPOTHYROIDISM
     Dosage: SEE IMAGE
     Route: 048
     Dates: start: 20040801, end: 20040101
  2. LEVOXYL [Suspect]
     Indication: HYPOTHYROIDISM
     Dosage: SEE IMAGE
     Route: 048
     Dates: start: 20040101
  3. CLIMARA [Concomitant]
  4. PROMETRIUM [Concomitant]
  5. CALCIUM (CALCIUM) [Concomitant]

REACTIONS (5)
  - DYSPHAGIA [None]
  - ERUCTATION [None]
  - GASTROOESOPHAGEAL REFLUX DISEASE [None]
  - PHARMACEUTICAL PRODUCT COMPLAINT [None]
  - THROAT TIGHTNESS [None]
